FAERS Safety Report 6501582-6 (Version None)
Quarter: 2009Q4

REPORT INFORMATION
  Report Type: 
  Country: None (occurrence: None)
  Receive Date: 20091215
  Receipt Date: 20091215
  Transmission Date: 20100525
  Serious: Yes (Other)
  Sender: FDA-Public Use
  Company Number: None

PATIENT
  Age: 46 Year
  Sex: Female
  Weight: 63 kg

DRUGS (1)
  1. CRINONE [Suspect]
     Indication: PREGNANCY
     Dosage: 1.125 G OF GEL ONCE DAILY VAG
     Route: 067
     Dates: start: 20091203, end: 20091211

REACTIONS (6)
  - BLOOD HUMAN CHORIONIC GONADOTROPIN DECREASED [None]
  - CHILLS [None]
  - HYPERSENSITIVITY [None]
  - ILL-DEFINED DISORDER [None]
  - NAUSEA [None]
  - OVERDOSE [None]
